FAERS Safety Report 20373819 (Version 2)
Quarter: 2022Q1

REPORT INFORMATION
  Report Type: Report from Study
  Country: CA (occurrence: CA)
  Receive Date: 20220125
  Receipt Date: 20220125
  Transmission Date: 20220423
  Serious: Yes (Hospitalization)
  Sender: FDA-Public Use
  Company Number: CA-CELGENE-CAN-20220104838

PATIENT
  Age: 63 Year
  Sex: Female

DRUGS (1)
  1. INREBIC [Suspect]
     Active Substance: FEDRATINIB HYDROCHLORIDE
     Indication: Myelofibrosis
     Dosage: 400 MILLIGRAM
     Route: 048
     Dates: end: 20220117

REACTIONS (2)
  - Myelofibrosis [Recovering/Resolving]
  - Acute leukaemia [Recovering/Resolving]

NARRATIVE: CASE EVENT DATE: 20220117
